FAERS Safety Report 10396915 (Version 1)
Quarter: 2014Q3

REPORT INFORMATION
  Report Type: Spontaneous
  Country: US (occurrence: US)
  Receive Date: 20140820
  Receipt Date: 20140820
  Transmission Date: 20150326
  Serious: Yes (Hospitalization)
  Sender: FDA-Public Use
  Company Number: US-JNJFOC-20140816015

PATIENT
  Sex: Female

DRUGS (3)
  1. INTERCEED [Suspect]
     Active Substance: CELLULOSE, OXIDIZED
     Indication: PRODUCT USED FOR UNKNOWN INDICATION
     Route: 061
  2. EVITHROM [Suspect]
     Active Substance: THROMBIN HUMAN
     Indication: PRODUCT USED FOR UNKNOWN INDICATION
     Route: 061
  3. LOCAL HAEMOSTATICS [Concomitant]
     Active Substance: UNSPECIFIED INGREDIENT
     Indication: PRODUCT USED FOR UNKNOWN INDICATION
     Route: 061

REACTIONS (1)
  - Abscess [Unknown]
